FAERS Safety Report 14303197 (Version 1)
Quarter: 2017Q4

REPORT INFORMATION
  Report Type: Spontaneous
  Country: JP (occurrence: JP)
  Receive Date: 20171219
  Receipt Date: 20171219
  Transmission Date: 20180321
  Serious: Yes (Death, Hospitalization, Other)
  Sender: FDA-Public Use
  Company Number: JP-ELI_LILLY_AND_COMPANY-JP201710005672

PATIENT
  Age: 71 Year
  Sex: Male
  Weight: 58 kg

DRUGS (3)
  1. PACLITAXEL. [Concomitant]
     Active Substance: PACLITAXEL
     Indication: GASTRIC CANCER STAGE IV
     Dosage: UNK
     Dates: start: 20170307, end: 20170905
  2. AMPICILLIN SODIUM/SULBACTAM SODIUM [Suspect]
     Active Substance: AMPICILLIN SODIUM\SULBACTAM SODIUM
     Indication: STAPHYLOCOCCAL INFECTION
     Dosage: UNK
     Route: 065
     Dates: start: 20171011, end: 20171015
  3. CYRAMZA [Suspect]
     Active Substance: RAMUCIRUMAB
     Indication: GASTRIC CANCER STAGE IV
     Dosage: UNK
     Route: 041
     Dates: start: 20170307, end: 20170829

REACTIONS (13)
  - Disseminated intravascular coagulation [Fatal]
  - Tumour haemorrhage [Fatal]
  - Hypoalbuminaemia [Unknown]
  - Staphylococcal infection [Unknown]
  - Hyponatraemia [Unknown]
  - Muscle haemorrhage [Fatal]
  - Dehydration [Unknown]
  - Herpes zoster [Unknown]
  - Diarrhoea [Unknown]
  - Haemothorax [Fatal]
  - Liver disorder [Unknown]
  - Systemic inflammatory response syndrome [Recovered/Resolved]
  - Device related infection [Unknown]

NARRATIVE: CASE EVENT DATE: 20170905
